FAERS Safety Report 6543619-4 (Version None)
Quarter: 2010Q1

REPORT INFORMATION
  Report Type: 
  Country: None (occurrence: None)
  Receive Date: 20100119
  Receipt Date: 20100119
  Transmission Date: 20100710
  Serious: Yes (Disabling)
  Sender: FDA-Public Use
  Company Number: None

PATIENT
  Age: 51 Year
  Sex: Female
  Weight: 72.5755 kg

DRUGS (1)
  1. COPAXONE [Suspect]
     Indication: MULTIPLE SCLEROSIS
     Dosage: 20 MG QHS IM INJECTION
     Route: 030
     Dates: start: 20031001

REACTIONS (6)
  - ERYTHEMA [None]
  - GAIT DISTURBANCE [None]
  - INJECTION SITE PAIN [None]
  - INJECTION SITE SCAR [None]
  - PURULENT DISCHARGE [None]
  - THERMAL BURN [None]
